FAERS Safety Report 5648941-1 (Version None)
Quarter: 2008Q1

REPORT INFORMATION
  Report Type: 
  Country: None (occurrence: None)
  Receive Date: 20080304
  Receipt Date: 20080222
  Transmission Date: 20080703
  Serious: Yes (Death, Other)
  Sender: FDA-Public Use
  Company Number: JP-JNJFOC-20070902645

PATIENT
  Sex: Male

DRUGS (7)
  1. CRAVIT [Suspect]
     Indication: UPPER RESPIRATORY TRACT INFLAMMATION
     Route: 048
     Dates: start: 20061121, end: 20061124
  2. LOXONIN [Suspect]
     Indication: BACK PAIN
     Route: 048
     Dates: start: 20061124, end: 20061124
  3. ASTOMIN [Concomitant]
     Indication: UPPER RESPIRATORY TRACT INFLAMMATION
     Route: 048
  4. COLIOPAN [Concomitant]
     Indication: ABDOMINAL PAIN
     Route: 048
     Dates: start: 20061122, end: 20061124
  5. LOPEMIN [Concomitant]
     Indication: DIARRHOEA
     Route: 048
     Dates: start: 20061122, end: 20061124
  6. TRIFLUID [Concomitant]
     Route: 042
  7. TRIFLUID [Concomitant]
     Indication: FLUID REPLACEMENT
     Route: 042

REACTIONS (3)
  - OCULOMUCOCUTANEOUS SYNDROME [None]
  - RHABDOMYOLYSIS [None]
  - SEPSIS [None]
